FAERS Safety Report 25021270 (Version 1)
Quarter: 2025Q1

REPORT INFORMATION
  Report Type: Spontaneous
  Country: BE (occurrence: BE)
  Receive Date: 20250228
  Receipt Date: 20250228
  Transmission Date: 20250408
  Serious: Yes (Other)
  Sender: JOHNSON AND JOHNSON
  Company Number: None

PATIENT
  Sex: Female

DRUGS (1)
  1. TOPAMAX [Suspect]
     Active Substance: TOPIRAMATE
     Indication: Migraine
     Route: 065
     Dates: start: 20241201, end: 20250103

REACTIONS (3)
  - Myopia [Recovered/Resolved]
  - Vision blurred [Recovered/Resolved]
  - Epiretinal membrane [Recovered/Resolved]

NARRATIVE: CASE EVENT DATE: 20250101
